FAERS Safety Report 8125720-7 (Version None)
Quarter: 2012Q1

REPORT INFORMATION
  Report Type: 
  Country: None (occurrence: None)
  Receive Date: 20120209
  Receipt Date: 20120201
  Transmission Date: 20120608
  Serious: Yes (Hospitalization)
  Sender: FDA-Public Use
  Company Number: KR-ABBOTT-12P-090-0900290-00

PATIENT
  Age: 48 Year
  Sex: Female

DRUGS (7)
  1. HALOXIN [Concomitant]
     Indication: RHEUMATOID ARTHRITIS
  2. ADALIMUMAB [Suspect]
     Indication: RHEUMATOID ARTHRITIS
     Route: 058
  3. NSAID'S [Concomitant]
     Indication: RHEUMATOID ARTHRITIS
  4. METHOTREXATE [Concomitant]
     Indication: RHEUMATOID ARTHRITIS
  5. PREDNISOLONE [Concomitant]
     Indication: RHEUMATOID ARTHRITIS
  6. TACROLIMUS [Concomitant]
     Indication: RHEUMATOID ARTHRITIS
  7. LEFLUNOMIDE [Concomitant]
     Indication: RHEUMATOID ARTHRITIS

REACTIONS (8)
  - GRANULOMA [None]
  - PULMONARY SARCOIDOSIS [None]
  - COUGH [None]
  - RASH PAPULAR [None]
  - DRY EYE [None]
  - SARCOIDOSIS [None]
  - EYE IRRITATION [None]
  - VISUAL ACUITY REDUCED [None]
